FAERS Safety Report 18712141 (Version 1)
Quarter: 2021Q1

REPORT INFORMATION
  Report Type: Spontaneous
  Country: US (occurrence: US)
  Receive Date: 20210107
  Receipt Date: 20210107
  Transmission Date: 20210419
  Serious: No
  Sender: FDA-Public Use
  Company Number: None

PATIENT
  Age: 40 Year
  Sex: Female
  Weight: 67.5 kg

DRUGS (5)
  1. TACROLIMUS OINTMENT 0.1% FOUGERA [Suspect]
     Active Substance: TACROLIMUS
     Indication: DERMATITIS ATOPIC
     Dosage: ?          QUANTITY:1 APPLICATION;?
     Route: 061
     Dates: start: 20210105, end: 20210106
  2. CYMBALTA [Concomitant]
     Active Substance: DULOXETINE HYDROCHLORIDE
  3. CONCERTA [Concomitant]
     Active Substance: METHYLPHENIDATE HYDROCHLORIDE
  4. MULTIVITAMIN [Concomitant]
     Active Substance: VITAMINS
  5. TACROLIMUS OINTMENT 0.1% FOUGERA [Suspect]
     Active Substance: TACROLIMUS
     Indication: ECZEMA
     Dosage: ?          QUANTITY:1 APPLICATION;?
     Route: 061
     Dates: start: 20210105, end: 20210106

REACTIONS (7)
  - Oral pain [None]
  - Application site swelling [None]
  - Lymphadenopathy [None]
  - Nasal congestion [None]
  - Application site pain [None]
  - Application site discomfort [None]
  - Oropharyngeal pain [None]

NARRATIVE: CASE EVENT DATE: 20210106
